FAERS Safety Report 6774033-4 (Version None)
Quarter: 2010Q2

REPORT INFORMATION
  Report Type: 
  Country: None (occurrence: None)
  Receive Date: 20100616
  Receipt Date: 20100616
  Transmission Date: 20101027
  Serious: Yes (Other)
  Sender: FDA-Public Use
  Company Number: None

PATIENT
  Age: 30 Year
  Sex: Female
  Weight: 47.6277 kg

DRUGS (1)
  1. BACTRIM DS [Suspect]
     Indication: CYSTITIS
     Dosage: 1 TABLET TWICE DAILY PO
     Route: 048
     Dates: start: 20100610, end: 20100612

REACTIONS (2)
  - INCREASED TENDENCY TO BRUISE [None]
  - PETECHIAE [None]
